FAERS Safety Report 5306147-X (Version None)
Quarter: 2007Q2

REPORT INFORMATION
  Report Type: 
  Country: None (occurrence: None)
  Receive Date: 20070417
  Receipt Date: 20070309
  Transmission Date: 20071010
  Serious: Yes (Death)
  Sender: FDA-Public Use
  Company Number: 2007VX000835

PATIENT
  Age: 40 Year
  Sex: Female

DRUGS (3)
  1. FLURAZEPAM HYDROCHLORIDE [Suspect]
     Indication: DRUG ABUSER
  2. METHADONE HCL [Suspect]
     Indication: DRUG ABUSER
     Dosage: 135 MG; QD
  3. CLONAZEPAM [Suspect]
     Indication: DRUG ABUSER

REACTIONS (7)
  - DRUG ABUSER [None]
  - ELECTROCARDIOGRAM QT PROLONGED [None]
  - OVERDOSE [None]
  - RESPIRATORY DEPRESSION [None]
  - SUDDEN DEATH [None]
  - TORSADE DE POINTES [None]
  - VENTRICULAR ARRHYTHMIA [None]
